FAERS Safety Report 21230508 (Version 1)
Quarter: 2022Q3

REPORT INFORMATION
  Report Type: Spontaneous
  Country: DE (occurrence: DE)
  Receive Date: 20220818
  Receipt Date: 20220818
  Transmission Date: 20221027
  Serious: Yes (Other)
  Sender: FDA-Public Use
  Company Number: DE-CELLTRION INC.-2022DE013044

PATIENT

DRUGS (6)
  1. INFLIXIMAB [Suspect]
     Active Substance: INFLIXIMAB
     Indication: Ulcerative keratitis
     Dosage: WHICH WAS REPEATED AND CONTINUOUSLY STRETCHED FOR UP TO 4 WEEKS INTERVAL
     Route: 042
     Dates: start: 2018
  2. ADALIMUMAB [Suspect]
     Active Substance: ADALIMUMAB
     Indication: Ulcerative keratitis
     Dosage: 40 MILLIGRAM, Q2WEEKS
     Route: 058
  3. ADALIMUMAB [Suspect]
     Active Substance: ADALIMUMAB
     Dosage: WEEK ZERO
     Route: 058
  4. PREDNISOLONE [Concomitant]
     Active Substance: PREDNISOLONE
     Indication: Ulcerative keratitis
     Dosage: UNKNOWN
     Route: 065
  5. TOCILIZUMAB [Concomitant]
     Active Substance: TOCILIZUMAB
     Indication: Ulcerative keratitis
     Dosage: 800 MILLIGRAM, Q4WEEKS
     Route: 042
  6. TOCILIZUMAB [Concomitant]
     Active Substance: TOCILIZUMAB
     Dosage: 162 MILLIGRAM, 1/WEEK
     Route: 058

REACTIONS (5)
  - Ulcerative keratitis [Unknown]
  - Drug level decreased [Unknown]
  - Drug specific antibody [Unknown]
  - Drug ineffective [Unknown]
  - Off label use [Unknown]
